FAERS Safety Report 6873926-7 (Version None)
Quarter: 2010Q3

REPORT INFORMATION
  Report Type: 
  Country: None (occurrence: None)
  Receive Date: 20100723
  Receipt Date: 20090826
  Transmission Date: 20110219
  Serious: Yes (Hospitalization, Other)
  Sender: FDA-Public Use
  Company Number: US-PFIZER INC-2009184394

PATIENT
  Sex: Male
  Weight: 72.562 kg

DRUGS (3)
  1. CHANTIX [Suspect]
     Indication: SMOKING CESSATION THERAPY
     Dosage: 1 MG, 2X/DAY
     Route: 048
     Dates: start: 20090216, end: 20090306
  2. DRUG, UNSPECIFIED [Suspect]
  3. PSYCHOTHERAPY [Concomitant]
     Dosage: UNK

REACTIONS (6)
  - AGGRESSION [None]
  - AGITATION [None]
  - ENURESIS [None]
  - MOOD SWINGS [None]
  - MULTIPLE DRUG OVERDOSE [None]
  - SUICIDE ATTEMPT [None]
